FAERS Safety Report 5062023-1 (Version None)
Quarter: 2006Q3

REPORT INFORMATION
  Report Type: 
  Country: None (occurrence: None)
  Receive Date: 20060703
  Receipt Date: 20051024
  Transmission Date: 20061208
  Serious: No
  Sender: FDA-Public Use
  Company Number: 2005S1010450

PATIENT
  Age: 20 Year
  Sex: Female

DRUGS (9)
  1. CLOZAPINE [Suspect]
     Indication: PSYCHOTIC DISORDER
     Dosage: 10 MG; HS; PO
     Route: 048
     Dates: start: 20050801
  2. CLOZAPINE [Suspect]
     Indication: SUICIDAL BEHAVIOUR
     Dosage: 10 MG; HS; PO
     Route: 048
     Dates: start: 20050801
  3. VALPROATE SODIUM [Concomitant]
  4. LAMOTRIGINE [Concomitant]
  5. ARIPIPRAZOLE [Concomitant]
  6. LISINOPRIL [Concomitant]
  7. HYDROCHLOROTHIAZIDE [Concomitant]
  8. ZAFIRLUKAST [Concomitant]
  9. PANTOPRAZOLE SODIUM [Concomitant]

REACTIONS (1)
  - GRANULOCYTOPENIA [None]
